FAERS Safety Report 5971087-X (Version None)
Quarter: 2008Q4

REPORT INFORMATION
  Report Type: 
  Country: None (occurrence: None)
  Receive Date: 20081128
  Receipt Date: 20080417
  Transmission Date: 20090506
  Serious: Yes (Other)
  Sender: FDA-Public Use
  Company Number: BR-BAYER-200814153LA

PATIENT
  Age: 31 Year
  Sex: Female

DRUGS (1)
  1. YASMIN [Suspect]
     Indication: DRUG USE FOR UNKNOWN INDICATION
     Route: 048
     Dates: start: 20080411

REACTIONS (6)
  - DEPRESSED MOOD [None]
  - HEADACHE [None]
  - MALAISE [None]
  - MIGRAINE [None]
  - MOOD ALTERED [None]
  - SOMNOLENCE [None]
